FAERS Safety Report 7118808-0 (Version None)
Quarter: 2010Q4

REPORT INFORMATION
  Report Type: 
  Country: None (occurrence: None)
  Receive Date: 20101123
  Receipt Date: 20101018
  Transmission Date: 20110411
  Serious: No
  Sender: FDA-Public Use
  Company Number: US-KINGPHARMUSA00001-K201001300

PATIENT
  Age: 60 Year
  Sex: Female

DRUGS (1)
  1. FLECTOR [Suspect]
     Dosage: UNK PATCH, UNK
     Route: 061
     Dates: end: 20101001

REACTIONS (1)
  - APPLICATION SITE VESICLES [None]
